FAERS Safety Report 12233198 (Version 1)
Quarter: 2016Q2

REPORT INFORMATION
  Report Type: Spontaneous
  Country: US (occurrence: US)
  Receive Date: 20160404
  Receipt Date: 20160404
  Transmission Date: 20160815
  Serious: Yes (Hospitalization)
  Sender: FDA-Public Use
  Company Number: US-JNJFOC-20160320917

PATIENT
  Sex: Male

DRUGS (12)
  1. HALDOL DECANOATE [Concomitant]
     Active Substance: HALOPERIDOL DECANOATE
     Indication: SUICIDAL IDEATION
     Route: 030
  2. MS CONTIN [Concomitant]
     Active Substance: MORPHINE SULFATE
     Indication: LIGAMENT RUPTURE
     Route: 065
  3. MS CONTIN [Concomitant]
     Active Substance: MORPHINE SULFATE
     Indication: LIGAMENT RUPTURE
     Route: 065
     Dates: start: 20160321
  4. ATORVASTATIN [Concomitant]
     Active Substance: ATORVASTATIN
     Indication: DYSLIPIDAEMIA
     Route: 065
  5. HALDOL DECANOATE [Concomitant]
     Active Substance: HALOPERIDOL DECANOATE
     Indication: HALLUCINATION, AUDITORY
     Route: 030
  6. HALDOL [Concomitant]
     Active Substance: HALOPERIDOL
     Indication: SUICIDAL IDEATION
     Dosage: IN THE SECOND WEEK O
     Route: 065
  7. HALDOL DECANOATE [Concomitant]
     Active Substance: HALOPERIDOL DECANOATE
     Indication: HALLUCINATION, AUDITORY
     Route: 030
  8. ASPIRIN. [Suspect]
     Active Substance: ASPIRIN
     Indication: SUICIDAL IDEATION
     Route: 065
  9. MS CONTIN [Concomitant]
     Active Substance: MORPHINE SULFATE
     Indication: LIGAMENT RUPTURE
     Route: 065
     Dates: start: 20160302
  10. HALDOL DECANOATE [Concomitant]
     Active Substance: HALOPERIDOL DECANOATE
     Indication: SUICIDAL IDEATION
     Route: 030
  11. TYLENOL [Suspect]
     Active Substance: ACETAMINOPHEN
     Indication: SUICIDE ATTEMPT
     Route: 048
  12. HALDOL [Concomitant]
     Active Substance: HALOPERIDOL
     Indication: HALLUCINATION, AUDITORY
     Dosage: IN THE SECOND WEEK O
     Route: 065

REACTIONS (2)
  - Suicide attempt [Unknown]
  - Intentional overdose [Unknown]
